FAERS Safety Report 15554353 (Version 2)
Quarter: 2018Q4

REPORT INFORMATION
  Report Type: Spontaneous
  Country: US (occurrence: US)
  Receive Date: 20181026
  Receipt Date: 20181026
  Transmission Date: 20190205
  Serious: Yes (Death, Other)
  Sender: FDA-Public Use
  Company Number: US-SA-2018SA003692

PATIENT
  Age: 72 Year
  Sex: Female

DRUGS (4)
  1. TAXOTERE [Suspect]
     Active Substance: DOCETAXEL
     Indication: BREAST CANCER FEMALE
     Dosage: 165 MG,Q3W
     Route: 042
     Dates: start: 201103, end: 201103
  2. TAXOTERE [Suspect]
     Active Substance: DOCETAXEL
     Dosage: 165 MG,Q3W
     Route: 042
     Dates: start: 2012, end: 2012
  3. TAXOTERE [Suspect]
     Active Substance: DOCETAXEL
     Dosage: 165 MG,Q3W
     Route: 042
     Dates: start: 2013, end: 2013
  4. TAXOTERE [Suspect]
     Active Substance: DOCETAXEL
     Dosage: 165 MG,Q3W
     Route: 042
     Dates: start: 201105, end: 201105

REACTIONS (2)
  - Alopecia [Not Recovered/Not Resolved]
  - Psychological trauma [Unknown]

NARRATIVE: CASE EVENT DATE: 2012
